FAERS Safety Report 8475666-X (Version None)
Quarter: 2012Q2

REPORT INFORMATION
  Report Type: 
  Country: None (occurrence: None)
  Receive Date: 20120628
  Receipt Date: 20120620
  Transmission Date: 20120825
  Serious: Yes (Hospitalization)
  Sender: FDA-Public Use
  Company Number: US-GLAXOSMITHKLINE-A0788886A

PATIENT
  Age: 59 Year
  Sex: Female
  Weight: 81.8 kg

DRUGS (9)
  1. HYDROCHLOROTHIAZIDE [Concomitant]
  2. LEVOTHROID [Concomitant]
  3. TOPROL-XL [Concomitant]
  4. PREVACID [Concomitant]
  5. AVANDIA [Suspect]
     Indication: TYPE 2 DIABETES MELLITUS
     Route: 048
     Dates: start: 20040901, end: 20070801
  6. CRESTOR [Concomitant]
  7. CRESTOR [Concomitant]
  8. PROTONIX [Concomitant]
  9. METFORMIN HCL [Concomitant]

REACTIONS (3)
  - MYOCARDIAL INFARCTION [None]
  - CORONARY ARTERY DISEASE [None]
  - CARDIOVASCULAR DISORDER [None]
